FAERS Safety Report 7055509-1 (Version None)
Quarter: 2010Q4

REPORT INFORMATION
  Report Type: 
  Country: None (occurrence: None)
  Receive Date: 20101021
  Receipt Date: 20101011
  Transmission Date: 20110411
  Serious: Yes (Life-Threatening, Hospitalization)
  Sender: FDA-Public Use
  Company Number: DE-JNJFOC-20100708834

PATIENT
  Sex: Male
  Weight: 74 kg

DRUGS (3)
  1. TOPAMAX [Suspect]
     Indication: EPILEPSY
     Route: 048
  2. TRILEPTAL [Concomitant]
     Route: 065
  3. LAMOTRIGINE [Concomitant]
     Route: 065

REACTIONS (6)
  - ACUTE HEPATIC FAILURE [None]
  - ATAXIA [None]
  - BILIARY ISCHAEMIA [None]
  - BRAIN OEDEMA [None]
  - HYPERTHERMIA [None]
  - MULTI-ORGAN FAILURE [None]
